FAERS Safety Report 5912369-7 (Version None)
Quarter: 2008Q4

REPORT INFORMATION
  Report Type: 
  Country: None (occurrence: None)
  Receive Date: 20081007
  Receipt Date: 20081007
  Transmission Date: 20090506
  Serious: Yes (Other)
  Sender: FDA-Public Use
  Company Number: None

PATIENT
  Age: 20 Year
  Sex: Female
  Weight: 67.1324 kg

DRUGS (1)
  1. IMPLANON [Suspect]
     Indication: CONTRACEPTION
     Dates: start: 20080812

REACTIONS (13)
  - ABDOMINAL PAIN [None]
  - BLINDNESS TRANSIENT [None]
  - CRYING [None]
  - DEPRESSION [None]
  - DIZZINESS [None]
  - EAR DISCOMFORT [None]
  - HEADACHE [None]
  - HYPERSOMNIA [None]
  - MENORRHAGIA [None]
  - PARAESTHESIA [None]
  - PHOTOSENSITIVITY REACTION [None]
  - SUPPRESSED LACTATION [None]
  - VULVOVAGINAL DISCOMFORT [None]
